FAERS Safety Report 23585006 (Version 1)
Quarter: 2024Q1

REPORT INFORMATION
  Report Type: Spontaneous
  Country: GB (occurrence: GB)
  Receive Date: 20240301
  Receipt Date: 20240301
  Transmission Date: 20240409
  Serious: Yes (Death, Life-Threatening, Hospitalization, Other)
  Sender: FDA-Public Use
  Company Number: GB-CHEPLA-C20212436

PATIENT
  Age: 5 Year
  Sex: Male

DRUGS (15)
  1. CARBOPLATIN [Suspect]
     Active Substance: CARBOPLATIN
     Indication: Brain cancer metastatic
     Dosage: HIGH DOSE CONSOLIDATION THERAPY
     Route: 065
  2. CISPLATIN [Suspect]
     Active Substance: CISPLATIN
     Indication: Brain cancer metastatic
     Dosage: UNK; CYCLIC (TWO ROUNDS OF CHEMOTHERAPY)
     Route: 065
     Dates: start: 201911, end: 20191216
  3. CYCLOPHOSPHAMIDE [Suspect]
     Active Substance: CYCLOPHOSPHAMIDE
     Indication: Brain cancer metastatic
     Dosage: UNK; CYCLIC (TWO ROUNDS OF CHEMOTHERAPY)
     Route: 065
  4. THIOTEPA [Suspect]
     Active Substance: THIOTEPA
     Indication: Brain cancer metastatic
     Dosage: HIGH DOSE CONSOLIDATION THERAPY
     Route: 065
  5. VEPESID [Suspect]
     Active Substance: ETOPOSIDE
     Indication: Brain cancer metastatic
     Dosage: UNK; CYCLIC (TWO ROUNDS OF CHEMOTHERAPY)
     Route: 042
  6. VEPESID [Suspect]
     Active Substance: ETOPOSIDE
     Dosage: HIGH DOSE CONSOLIDATION THERAPY
     Route: 065
  7. VINCRISTINE [Suspect]
     Active Substance: VINCRISTINE
     Indication: Brain cancer metastatic
     Dosage: UNK; CYCLIC (TWO ROUNDS OF CHEMOTHERAPY)
     Route: 065
     Dates: start: 201911, end: 20191216
  8. APREPITANT [Concomitant]
     Active Substance: APREPITANT
     Indication: Product used for unknown indication
     Dosage: UNK
     Route: 065
  9. COTRIMOXAZOLE [Concomitant]
     Active Substance: SULFAMETHOXAZOLE\TRIMETHOPRIM
     Indication: Product used for unknown indication
     Dosage: UNK
     Route: 065
  10. DESMOPRESSIN [Concomitant]
     Active Substance: DESMOPRESSIN
     Indication: Product used for unknown indication
     Dosage: UNK
     Route: 065
  11. LENOGRASTIM [Concomitant]
     Active Substance: LENOGRASTIM
     Indication: Product used for unknown indication
     Dosage: UNK
     Route: 065
  12. LEVETIRACETAM [Concomitant]
     Active Substance: LEVETIRACETAM
     Indication: Product used for unknown indication
     Dosage: UNK
     Route: 065
  13. LOPERAMIDE [Concomitant]
     Active Substance: LOPERAMIDE
     Indication: Product used for unknown indication
     Dosage: UNK
     Route: 065
  14. METOCLOPRAMIDE [Concomitant]
     Active Substance: METOCLOPRAMIDE
     Indication: Product used for unknown indication
     Dosage: UNK
     Route: 065
  15. ONDANSETRON [Concomitant]
     Active Substance: ONDANSETRON
     Indication: Product used for unknown indication
     Dosage: UNK
     Route: 065

REACTIONS (14)
  - Haemorrhage intracranial [Fatal]
  - Neutropenic sepsis [Unknown]
  - Headache [Unknown]
  - Illness [Unknown]
  - Pancytopenia [Unknown]
  - Acute kidney injury [Unknown]
  - Pain [Unknown]
  - Seizure [Unknown]
  - Diarrhoea [Unknown]
  - Mouth ulceration [Unknown]
  - Mucosal inflammation [Unknown]
  - Intestinal prolapse [Unknown]
  - Feeding disorder [Unknown]
  - Malignant neoplasm progression [Unknown]

NARRATIVE: CASE EVENT DATE: 20190101
